FAERS Safety Report 11383120 (Version 1)
Quarter: 2015Q3

REPORT INFORMATION
  Report Type: Spontaneous
  Country: US (occurrence: US)
  Receive Date: 20150814
  Receipt Date: 20150814
  Transmission Date: 20151125
  Serious: No
  Sender: FDA-Public Use
  Company Number: US-VIVUS-2015V1000202

PATIENT
  Age: 40 Year
  Sex: Female
  Weight: 143.01 kg

DRUGS (5)
  1. QSYMIA [Suspect]
     Active Substance: PHENTERMINE HYDROCHLORIDE\TOPIRAMATE
     Indication: WEIGHT DECREASED
     Route: 048
  2. SYNTHROID [Concomitant]
     Active Substance: LEVOTHYROXINE SODIUM
     Indication: HYPOTHYROIDISM
     Route: 048
     Dates: start: 2008
  3. VITAMIN D [Concomitant]
     Active Substance: CHOLECALCIFEROL
     Indication: PRODUCT USED FOR UNKNOWN INDICATION
  4. QSYMIA [Suspect]
     Active Substance: PHENTERMINE HYDROCHLORIDE\TOPIRAMATE
     Indication: WEIGHT DECREASED
     Route: 048
     Dates: start: 201504, end: 201504
  5. APRI [Concomitant]
     Active Substance: DESOGESTREL\ETHINYL ESTRADIOL
     Indication: CONTRACEPTION
     Dosage: LOW DOSE
     Route: 048

REACTIONS (3)
  - Migraine [Recovered/Resolved]
  - Thrombophlebitis superficial [Recovered/Resolved]
  - Menorrhagia [Recovered/Resolved]

NARRATIVE: CASE EVENT DATE: 201504
